FAERS Safety Report 10363417 (Version 1)
Quarter: 2014Q1

REPORT INFORMATION
  Report Type: Spontaneous
  Country: US (occurrence: None)
  Receive Date: 20140306
  Receipt Date: 20140306
  Transmission Date: 20141002
  Serious: Yes (Other)
  Sender: FDA-Public Use
  Company Number: 163-21880-13020309

PATIENT
  Age: 71 Year
  Sex: Male

DRUGS (10)
  1. REVLIMID [Suspect]
     Indication: PLASMA CELL MYELOMA
     Dosage: 10 MG, 21 IN 28 D, PO
     Route: 048
     Dates: start: 201210
  2. DEXAMETHASONE(DEXAMETHASONE)(UNKNOWN) [Concomitant]
  3. WARFARIN(WARFARIN)(UNKNOWN) [Concomitant]
  4. ENOXAPARIN (ENOXAPARIN) [Concomitant]
  5. HCTZ(HYDROCHLOROTHIAZIDE)(UNKNOWN)? [Concomitant]
  6. NORTRIPTYLINE(NORTRIPTYLINE)(UNKNOWN) [Concomitant]
  7. MORPHINE(MORPHINE) (UNKNOWN)? [Concomitant]
  8. OXYCODONE(OXYCODONE)(UNKNOWN)? [Concomitant]
  9. DOCUSATE SODIUM(DOCUSATE SODIUM)(UNKNOWN) [Concomitant]
  10. SENNA(SENNA)(UNKNOWN) [Concomitant]

REACTIONS (1)
  - Deep vein thrombosis [None]
